FAERS Safety Report 7518478-3 (Version None)
Quarter: 2011Q2

REPORT INFORMATION
  Report Type: 
  Country: None (occurrence: None)
  Receive Date: 20110601
  Receipt Date: 20110601
  Transmission Date: 20111010
  Serious: Yes (Hospitalization, Other)
  Sender: FDA-Public Use
  Company Number: None

PATIENT
  Age: 49 Year
  Sex: Female
  Weight: 108.8633 kg

DRUGS (1)
  1. MAXZIDE [Suspect]
     Indication: HYPERTENSION
     Dosage: ONE A DAY
     Dates: start: 20110423, end: 20110529

REACTIONS (4)
  - MALAISE [None]
  - SWELLING [None]
  - SKIN DISCOLOURATION [None]
  - HEADACHE [None]
